FAERS Safety Report 19368630 (Version 1)
Quarter: 2021Q2

REPORT INFORMATION
  Report Type: Report from Study
  Country: KR (occurrence: KR)
  Receive Date: 20210602
  Receipt Date: 20210602
  Transmission Date: 20210717
  Serious: Yes (Other)
  Sender: FDA-Public Use
  Company Number: KR-AMGEN-KORCT2021084136

PATIENT
  Age: 36 Year
  Sex: Female

DRUGS (9)
  1. FILGRASTIM [Suspect]
     Active Substance: FILGRASTIM
     Dosage: 150 UNK
     Route: 065
     Dates: start: 20110911, end: 20110911
  2. FILGRASTIM [Suspect]
     Active Substance: FILGRASTIM
     Dosage: 150 UNK
     Route: 065
     Dates: start: 20110915, end: 20110915
  3. FILGRASTIM [Suspect]
     Active Substance: FILGRASTIM
     Dosage: 150 UNK
     Route: 065
     Dates: start: 20110817, end: 20110905
  4. FILGRASTIM [Suspect]
     Active Substance: FILGRASTIM
     Dosage: 150 UNK
     Route: 065
     Dates: start: 20110623, end: 20110625
  5. FILGRASTIM [Suspect]
     Active Substance: FILGRASTIM
     Dosage: 150 UNK
     Route: 065
     Dates: start: 20110511, end: 20110519
  6. FILGRASTIM [Suspect]
     Active Substance: FILGRASTIM
     Indication: PRODUCT USED FOR UNKNOWN INDICATION
     Dosage: 150 UNK
     Route: 065
     Dates: start: 20110509, end: 20110509
  7. FILGRASTIM [Suspect]
     Active Substance: FILGRASTIM
     Dosage: 150 UNK
     Route: 065
     Dates: start: 20110920, end: 20110920
  8. FILGRASTIM [Suspect]
     Active Substance: FILGRASTIM
     Dosage: 150 UNK
     Route: 065
     Dates: start: 20110924, end: 20110924
  9. FILGRASTIM [Suspect]
     Active Substance: FILGRASTIM
     Dosage: 150 UNK
     Route: 065
     Dates: start: 20110724, end: 20110730

REACTIONS (17)
  - Haemorrhage [Recovered/Resolved]
  - Haemorrhoids [Recovered/Resolved]
  - Azotaemia [Recovered/Resolved]
  - Weight increased [Recovered/Resolved]
  - Hypocalcaemia [Recovered/Resolved]
  - Hypokalaemia [Recovered/Resolved]
  - Anorectal disorder [Recovered/Resolved]
  - Pneumonia [Recovered/Resolved]
  - Thrombocytopenia [Recovered/Resolved]
  - Decreased appetite [Recovered/Resolved]
  - Hypomagnesaemia [Recovered/Resolved]
  - Neutropenia [Recovered/Resolved]
  - Oliguria [Recovered/Resolved]
  - Anaemia [Recovered/Resolved]
  - Hypophosphataemia [Recovered/Resolved]
  - Aspergillus infection [Recovered/Resolved]
  - Alanine aminotransferase increased [Recovered/Resolved]

NARRATIVE: CASE EVENT DATE: 20110509
